FAERS Safety Report 6683843-3 (Version None)
Quarter: 2010Q2

REPORT INFORMATION
  Report Type: 
  Country: None (occurrence: None)
  Receive Date: 20100416
  Receipt Date: 20100331
  Transmission Date: 20101027
  Serious: Yes (Other)
  Sender: FDA-Public Use
  Company Number: BE-JNJFOC-20100403281

PATIENT
  Age: 81 Year
  Sex: Female

DRUGS (1)
  1. SPORANOX [Suspect]
     Indication: CANDIDIASIS
     Route: 065

REACTIONS (4)
  - ASTHENIA [None]
  - CARDIAC FAILURE [None]
  - NOCTURIA [None]
  - OEDEMA PERIPHERAL [None]
